FAERS Safety Report 20899914 (Version 1)
Quarter: 2022Q2

REPORT INFORMATION
  Report Type: Spontaneous
  Country: CA (occurrence: None)
  Receive Date: 20220601
  Receipt Date: 20220601
  Transmission Date: 20220721
  Serious: Yes (Other)
  Sender: FDA-Public Use
  Company Number: CA-ROCHE-3105135

PATIENT
  Age: 67 Year
  Sex: Male

DRUGS (1)
  1. CAPECITABINE [Suspect]
     Active Substance: CAPECITABINE
     Indication: Extramammary Paget^s disease
     Dosage: THERAPY DURATION + THERAPY DURATION UNITS: 14 DAYS
     Route: 048

REACTIONS (6)
  - Jaundice [Unknown]
  - Confusional state [Unknown]
  - Extramammary Paget^s disease [Unknown]
  - Fatigue [Unknown]
  - Off label use [Unknown]
  - Malignant neoplasm progression [Unknown]
